FAERS Safety Report 23796837 (Version 1)
Quarter: 2024Q2

REPORT INFORMATION
  Report Type: Spontaneous
  Country: FR (occurrence: FR)
  Receive Date: 20240430
  Receipt Date: 20240430
  Transmission Date: 20240716
  Serious: Yes (Death)
  Sender: FDA-Public Use
  Company Number: FR-SUN PHARMACEUTICAL INDUSTRIES LTD-2024RR-444643

PATIENT
  Age: 73 Year
  Sex: Female

DRUGS (1)
  1. MORPHINE [Suspect]
     Active Substance: MORPHINE
     Indication: Pain
     Dosage: 3 AMPOULES OF 10MG/ML
     Route: 058
     Dates: start: 20231216, end: 20231217

REACTIONS (2)
  - Respiratory distress [Fatal]
  - Incorrect dosage administered [Recovered/Resolved]
